FAERS Safety Report 8128408-1 (Version None)
Quarter: 2012Q1

REPORT INFORMATION
  Report Type: 
  Country: None (occurrence: None)
  Receive Date: 20120210
  Receipt Date: 20120206
  Transmission Date: 20120608
  Serious: Yes (Hospitalization, Disabling, Other)
  Sender: FDA-Public Use
  Company Number: US-PFIZER INC-2011054377

PATIENT
  Sex: Female

DRUGS (1)
  1. CHANTIX [Suspect]
     Indication: SMOKING CESSATION THERAPY
     Dosage: 1MG AND 0.5MG
     Dates: start: 20080401, end: 20080501

REACTIONS (6)
  - INTENTIONAL OVERDOSE [None]
  - BIPOLAR DISORDER [None]
  - INJURY [None]
  - PANIC ATTACK [None]
  - SUICIDE ATTEMPT [None]
  - AGORAPHOBIA [None]
